FAERS Safety Report 10344191 (Version 1)
Quarter: 2014Q3

REPORT INFORMATION
  Report Type: Spontaneous
  Country: ES (occurrence: None)
  Receive Date: 20140724
  Receipt Date: 20140724
  Transmission Date: 20150326
  Serious: Yes (Hospitalization)
  Sender: FDA-Public Use
  Company Number: 2014-002072

PATIENT
  Age: 79 Year
  Sex: Female

DRUGS (3)
  1. ASPIRIN (ACETYLSALICYCLIC ACID) [Suspect]
     Active Substance: ASPIRIN
     Indication: PAIN
     Route: 048
     Dates: start: 2012, end: 20131004
  2. OMEPRAZOL [Concomitant]
     Active Substance: OMEPRAZOLE
  3. ACREL [Suspect]
     Active Substance: RISEDRONATE SODIUM
     Indication: OSTEOPOROSIS
     Dosage: 2 CD/MONTH
     Route: 048
     Dates: start: 201209, end: 201309

REACTIONS (5)
  - Anaemia [None]
  - Gastric ulcer [None]
  - Alopecia [None]
  - Asthenia [None]
  - Muscle spasms [None]

NARRATIVE: CASE EVENT DATE: 20131004
